APPROVED DRUG PRODUCT: PHENDIMETRAZINE TARTRATE
Active Ingredient: PHENDIMETRAZINE TARTRATE
Strength: 35MG
Dosage Form/Route: TABLET;ORAL
Application: A091042 | Product #001 | TE Code: AA
Applicant: KVK TECH INC
Approved: Aug 31, 2010 | RLD: No | RS: No | Type: RX